FAERS Safety Report 9230671 (Version 1)
Quarter: 2013Q2

REPORT INFORMATION
  Report Type: Spontaneous
  Country: US (occurrence: US)
  Receive Date: 20130415
  Receipt Date: 20130415
  Transmission Date: 20140414
  Serious: Yes (Hospitalization)
  Sender: FDA-Public Use
  Company Number: US-TEVA-397334USA

PATIENT
  Age: 13 Year
  Sex: Female
  Weight: 61 kg

DRUGS (2)
  1. AMLODIPINE [Suspect]
     Indication: INTENTIONAL OVERDOSE
     Dosage: 30 X 10MG TABLETS
     Route: 048
  2. BUTALBITAL [Suspect]
     Indication: INTENTIONAL OVERDOSE
     Route: 065

REACTIONS (10)
  - Intentional overdose [Recovering/Resolving]
  - Mental status changes [Recovering/Resolving]
  - Somnolence [Recovering/Resolving]
  - Hypotension [Recovering/Resolving]
  - Nausea [Recovering/Resolving]
  - Vomiting [Recovering/Resolving]
  - Metabolic acidosis [Recovering/Resolving]
  - Lactic acidosis [Recovering/Resolving]
  - Multi-organ failure [Recovering/Resolving]
  - Hypoperfusion [Recovering/Resolving]
